FAERS Safety Report 19122887 (Version 3)
Quarter: 2025Q3

REPORT INFORMATION
  Report Type: Report from Study
  Country: CA (occurrence: CA)
  Receive Date: 20210412
  Receipt Date: 20250801
  Transmission Date: 20251021
  Serious: Yes (Other)
  Sender: TAKEDA
  Company Number: CA-TAKEDA-2020TUS043278

PATIENT
  Sex: Female

DRUGS (9)
  1. VEDOLIZUMAB [Suspect]
     Active Substance: VEDOLIZUMAB
     Indication: Colitis ulcerative
  2. VEDOLIZUMAB [Suspect]
     Active Substance: VEDOLIZUMAB
  3. VEDOLIZUMAB [Suspect]
     Active Substance: VEDOLIZUMAB
  4. VEDOLIZUMAB [Suspect]
     Active Substance: VEDOLIZUMAB
  5. PREDNISONE [Concomitant]
     Active Substance: PREDNISONE
  6. RABEPRAZOLE SODIUM [Concomitant]
     Active Substance: RABEPRAZOLE SODIUM
  7. PENTASA [Concomitant]
     Active Substance: MESALAMINE
  8. IMURAN [Concomitant]
     Active Substance: AZATHIOPRINE
  9. MESALAMINE [Concomitant]
     Active Substance: MESALAMINE

REACTIONS (5)
  - Vein rupture [Unknown]
  - Vein collapse [Unknown]
  - Respiratory rate decreased [Unknown]
  - Blood pressure increased [Unknown]
  - Headache [Unknown]
